FAERS Safety Report 22722710 (Version 2)
Quarter: 2024Q2

REPORT INFORMATION
  Report Type: Spontaneous
  Country: SE (occurrence: SE)
  Receive Date: 20230719
  Receipt Date: 20240502
  Transmission Date: 20240716
  Serious: Yes (Death, Other)
  Sender: FDA-Public Use
  Company Number: SE-Accord-367357

PATIENT
  Age: 38 Year
  Sex: Male

DRUGS (7)
  1. QUETIAPINE [Suspect]
     Active Substance: QUETIAPINE
     Indication: Product used for unknown indication
     Dosage: 200 MG, 7 TIMES DAILY
  2. OLANZAPINE [Suspect]
     Active Substance: OLANZAPINE
     Indication: Product used for unknown indication
     Dosage: 25 MG DAILY
  3. BUPRENORPHINE [Suspect]
     Active Substance: BUPRENORPHINE
     Indication: Product used for unknown indication
  4. GUANFACINE [Concomitant]
     Active Substance: GUANFACINE
     Dosage: 8 MG DAILY
  5. MELATONIN [Concomitant]
     Active Substance: MELATONIN
     Dosage: 10 MG DAILY
  6. PROPIOMAZINE [Concomitant]
     Active Substance: PROPIOMAZINE
     Dosage: 25 MG, 4 TIMES DAILY
  7. SERTRALINE [Concomitant]
     Active Substance: SERTRALINE HYDROCHLORIDE
     Dosage: 100 MG, 5 TIMES DAILY

REACTIONS (4)
  - Swelling [Unknown]
  - Pulmonary haemorrhage [Fatal]
  - Anaphylactic shock [Unknown]
  - Overdose [Fatal]
